FAERS Safety Report 9626095 (Version 1)
Quarter: 2013Q4

REPORT INFORMATION
  Report Type: Spontaneous
  Country: US (occurrence: US)
  Receive Date: 20131016
  Receipt Date: 20131016
  Transmission Date: 20140711
  Serious: No
  Sender: FDA-Public Use
  Company Number: US-MYLANLABS-2013S1016377

PATIENT
  Sex: Female

DRUGS (1)
  1. VALSARTAN AND HYDROCHLOROTHIAZIDE TABLETS [Suspect]
     Route: 048
     Dates: start: 201307, end: 201307

REACTIONS (2)
  - Nausea [Recovered/Resolved]
  - Abdominal pain [Recovered/Resolved]
